FAERS Safety Report 8949551 (Version 2)
Quarter: 2012Q4

REPORT INFORMATION
  Report Type: 
  Country: JP (occurrence: JP)
  Receive Date: 20121206
  Receipt Date: 20121211
  Transmission Date: 20130627
  Serious: Yes (Life-Threatening, Hospitalization)
  Sender: FDA-Public Use
  Company Number: JP-ELI_LILLY_AND_COMPANY-JP201211006964

PATIENT
  Age: 69 Year
  Sex: Female

DRUGS (6)
  1. EVISTA [Suspect]
     Indication: OSTEOPOROSIS
     Dosage: 60 mg, qd
     Route: 048
     Dates: start: 20120113, end: 20121112
  2. ZYPREXA [Suspect]
     Indication: DEPRESSION
     Dosage: 2.5 mg, qd
     Route: 048
     Dates: start: 20120113
  3. REMERON [Concomitant]
     Dosage: 15 mg, qd
     Route: 048
     Dates: start: 20120113
  4. WYPAX [Concomitant]
     Dosage: 1 mg, qd
     Route: 048
     Dates: start: 20120113
  5. ANAFRANIL [Concomitant]
     Dosage: 10 mg, qd
     Dates: start: 20020412, end: 20120112
  6. LENDORMIN [Concomitant]
     Dosage: 0.5 ug, qd
     Dates: start: 20021101, end: 20120112

REACTIONS (2)
  - Pulmonary embolism [Recovering/Resolving]
  - Deep vein thrombosis [Recovering/Resolving]
